FAERS Safety Report 21632722 (Version 1)
Quarter: 2022Q4

REPORT INFORMATION
  Report Type: Spontaneous
  Country: KW (occurrence: KW)
  Receive Date: 20221123
  Receipt Date: 20221123
  Transmission Date: 20230113
  Serious: Yes (Hospitalization, Other)
  Sender: FDA-Public Use
  Company Number: KW-MLMSERVICE-20221109-3899704-1

PATIENT
  Age: 11 Year
  Sex: Male
  Weight: 30 kg

DRUGS (3)
  1. RISPERDAL [Suspect]
     Active Substance: RISPERIDONE
     Indication: Attention deficit hyperactivity disorder
     Route: 065
  2. ATOMOXETINE [Concomitant]
     Active Substance: ATOMOXETINE
     Indication: Attention deficit hyperactivity disorder
     Dosage: TITRATED TO 40 MG/D OVER THREE WEEKS
     Route: 065
  3. ATOMOXETINE [Concomitant]
     Active Substance: ATOMOXETINE
     Dosage: TITRATED TO 40 MG/D OVER THREE WEEKS

REACTIONS (4)
  - Pancreatitis acute [Unknown]
  - Diabetes mellitus [Unknown]
  - Hypertriglyceridaemia [Unknown]
  - Off label use [Unknown]
